FAERS Safety Report 15832734 (Version 1)
Quarter: 2019Q1

REPORT INFORMATION
  Report Type: Spontaneous
  Country: US (occurrence: US)
  Receive Date: 20190116
  Receipt Date: 20190116
  Transmission Date: 20190417
  Serious: No
  Sender: FDA-Public Use
  Company Number: US-ACTELION-A-NJ2018-175577

PATIENT
  Age: 65 Year
  Sex: Female

DRUGS (1)
  1. OPSUMIT [Suspect]
     Active Substance: MACITENTAN
     Indication: PULMONARY ARTERIAL HYPERTENSION
     Dosage: 10 MG, QD
     Route: 048
     Dates: start: 20180714

REACTIONS (6)
  - Rhinorrhoea [Unknown]
  - Nasopharyngitis [Recovering/Resolving]
  - Blood pressure increased [Unknown]
  - Fatigue [Unknown]
  - Peripheral swelling [Unknown]
  - Accidental overdose [Recovered/Resolved]

NARRATIVE: CASE EVENT DATE: 20181001
